FAERS Safety Report 5642399-4 (Version None)
Quarter: 2008Q1

REPORT INFORMATION
  Report Type: 
  Country: None (occurrence: None)
  Receive Date: 20080227
  Receipt Date: 20080227
  Transmission Date: 20080703
  Serious: Yes (Disabling, Other)
  Sender: FDA-Public Use
  Company Number: None

PATIENT
  Age: 78 Year
  Sex: Female

DRUGS (12)
  1. FOSAMAX [Suspect]
     Indication: OSTEOPOROSIS
     Dosage: 10MG/DAILY : 70MG/WK
     Dates: end: 20060501
  2. FOSAMAX [Suspect]
     Indication: OSTEOPOROSIS
     Dosage: 10MG/DAILY : 70MG/WK
     Dates: start: 19960101
  3. PREDNISONE TAB [Concomitant]
  4. MYCELEX [Concomitant]
  5. CARDIZEM [Concomitant]
  6. PROTONIX [Concomitant]
  7. METHOTREXATE [Concomitant]
  8. RESTASIS [Concomitant]
  9. CO-Q10 [Concomitant]
  10. LIPITOR [Concomitant]
  11. LEUCOVORIN CALCIUM [Concomitant]
  12. SYNTHROID [Concomitant]

REACTIONS (3)
  - BONE DISORDER [None]
  - BONE PAIN [None]
  - OSTEONECROSIS [None]
